FAERS Safety Report 7906806-6 (Version None)
Quarter: 2011Q4

REPORT INFORMATION
  Report Type: 
  Country: None (occurrence: None)
  Receive Date: 20111110
  Receipt Date: 20111031
  Transmission Date: 20120403
  Serious: Yes (Hospitalization)
  Sender: FDA-Public Use
  Company Number: JP-BRISTOL-MYERS SQUIBB COMPANY-16207045

PATIENT
  Age: 92 Year
  Sex: Female

DRUGS (7)
  1. TRICHLORMETHIAZIDE [Concomitant]
     Dosage: 1 DF: 1 T
     Route: 048
  2. MAGNESIUM SULFATE [Concomitant]
     Dosage: 1 DF: 3 T
     Route: 048
  3. MUCOSTA [Concomitant]
     Dosage: 1 DF: 3 T
     Route: 048
  4. FUROSEMIDE [Concomitant]
     Dosage: 1 DF: 2 T
     Route: 048
  5. ASPIRIN [Concomitant]
     Route: 048
  6. ARGAMATE [Concomitant]
     Route: 048
  7. HYDREA [Suspect]
     Indication: THROMBOCYTOSIS
     Dosage: YEARLY BASIS
     Route: 048

REACTIONS (1)
  - INTERSTITIAL LUNG DISEASE [None]
